FAERS Safety Report 24573432 (Version 1)
Quarter: 2024Q4

REPORT INFORMATION
  Report Type: Spontaneous
  Country: CN (occurrence: CN)
  Receive Date: 20241102
  Receipt Date: 20241102
  Transmission Date: 20250115
  Serious: Yes (Hospitalization, Other)
  Sender: VKT PHARMA PRIVATE LIMITED
  Company Number: CN-VKT-000602

PATIENT
  Age: 3 Month
  Sex: Female

DRUGS (4)
  1. PHENOBARBITAL [Suspect]
     Active Substance: PHENOBARBITAL
     Indication: Neonatal seizure
     Dosage: LOADING DOSE FOLLOWED BY MAINTENANCE DOSE OF INTRAVENOUS PHENOBARBITONE WAS ADMINISTERED.
     Route: 042
  2. PYRIDOXINE [Suspect]
     Active Substance: PYRIDOXINE
     Indication: Neonatal seizure
     Route: 048
  3. PYRIDOXAL PHOSPHATE ANHYDROUS [Suspect]
     Active Substance: PYRIDOXAL PHOSPHATE ANHYDROUS
     Indication: Neonatal seizure
     Dosage: ORAL PYRIDOXAL-5-PHOSPHATE 40 MG/KG/D EVERY 4 HOURS WAS ADMINISTERED.
     Route: 048
  4. LEVETIRACETAM [Suspect]
     Active Substance: LEVETIRACETAM
     Indication: Neonatal seizure
     Route: 065

REACTIONS (2)
  - Seizure [Recovered/Resolved]
  - Drug ineffective [Unknown]
